FAERS Safety Report 11813107 (Version 2)
Quarter: 2016Q1

REPORT INFORMATION
  Report Type: Spontaneous
  Country: US (occurrence: US)
  Receive Date: 20151209
  Receipt Date: 20160204
  Transmission Date: 20160525
  Serious: Yes (Other)
  Sender: FDA-Public Use
  Company Number: US-AUROBINDO-AUR-APL-2015-11165

PATIENT
  Age: 47 Year
  Sex: Female
  Weight: 99.77 kg

DRUGS (4)
  1. HYDROCHLOROTHIAZIDE 12.5 MG [Suspect]
     Active Substance: HYDROCHLOROTHIAZIDE
     Indication: PRODUCT USED FOR UNKNOWN INDICATION
     Dosage: 12.5 MG, ONCE A DAY
     Route: 065
     Dates: start: 2012
  2. BENICAR [Suspect]
     Active Substance: OLMESARTAN MEDOXOMIL
     Dosage: 5 MG, TWO TIMES A DAY
     Route: 065
     Dates: start: 20130624, end: 20131203
  3. BENICAR [Suspect]
     Active Substance: OLMESARTAN MEDOXOMIL
     Dosage: 40 MG, TWO TIMES A DAY
     Route: 065
     Dates: end: 20141113
  4. BENICAR [Suspect]
     Active Substance: OLMESARTAN MEDOXOMIL
     Indication: HYPERTENSION
     Dosage: 40 MG, TWO TIMES A DAY
     Route: 065
     Dates: start: 20110610

REACTIONS (10)
  - Melaena [Unknown]
  - Dizziness [Unknown]
  - Malabsorption [Not Recovered/Not Resolved]
  - Colitis [Unknown]
  - Acute kidney injury [Unknown]
  - Anxiety [Not Recovered/Not Resolved]
  - Gastrooesophageal reflux disease [Unknown]
  - Chest pain [Unknown]
  - Drug administration error [Unknown]
  - Haematemesis [Unknown]

NARRATIVE: CASE EVENT DATE: 2011
